FAERS Safety Report 6908953-4 (Version None)
Quarter: 2010Q3

REPORT INFORMATION
  Report Type: 
  Country: None (occurrence: None)
  Receive Date: 20100803
  Receipt Date: 20100719
  Transmission Date: 20110219
  Serious: Yes (Life-Threatening)
  Sender: FDA-Public Use
  Company Number: 2010002278

PATIENT
  Age: 63 Year
  Sex: Male
  Weight: 83.4619 kg

DRUGS (3)
  1. TARCEVA [Suspect]
     Indication: LUNG NEOPLASM MALIGNANT
     Dosage: (150 MG, QD), ORAL
     Route: 048
     Dates: start: 20091209, end: 20100317
  2. ALTACE [Concomitant]
  3. ALLOPURINOL [Concomitant]

REACTIONS (2)
  - BRONCHIAL HAEMORRHAGE [None]
  - HAEMOPTYSIS [None]
